FAERS Safety Report 22033310 (Version 1)
Quarter: 2023Q1

REPORT INFORMATION
  Report Type: Spontaneous
  Country: US (occurrence: US)
  Receive Date: 20230224
  Receipt Date: 20230224
  Transmission Date: 20230417
  Serious: No
  Sender: FDA-Public Use
  Company Number: US-TEVA-2023-US-2855712

PATIENT
  Sex: Female

DRUGS (1)
  1. MUPIROCIN [Suspect]
     Active Substance: MUPIROCIN
     Indication: Product used for unknown indication
     Dosage: 2 PERCENT
     Route: 065

REACTIONS (3)
  - Skin exfoliation [Unknown]
  - Drug ineffective [Unknown]
  - Adverse event [Unknown]
